FAERS Safety Report 8083888-5 (Version None)
Quarter: 2012Q1

REPORT INFORMATION
  Report Type: 
  Country: None (occurrence: None)
  Receive Date: 20120128
  Receipt Date: 20110217
  Transmission Date: 20120608
  Serious: No
  Sender: FDA-Public Use
  Company Number: US-ABBOTT-11P-163-0698965-00

PATIENT
  Sex: Female

DRUGS (13)
  1. HUMIRA [Suspect]
     Dates: start: 20110101
  2. ASCORBIC ACID [Concomitant]
     Indication: CROHN'S DISEASE
     Dosage: 3 TABS DAILY
  3. GENGKOPA [Concomitant]
     Indication: VITAMIN SUPPLEMENTATION
     Dosage: ONE DAILY
  4. MERCAPTOPURINE [Concomitant]
     Indication: CROHN'S DISEASE
     Dosage: ONE TAB DAILY
  5. IRON [Concomitant]
     Indication: PROPHYLAXIS
  6. SYNTHROID [Concomitant]
     Indication: HYPOTHYROIDISM
     Dosage: ONE TAB DAILY
  7. GERITOL [Concomitant]
     Indication: PRODUCT USED FOR UNKNOWN INDICATION
     Dosage: ONE TAB DAILY
  8. UNKNOWN MEDICATION [Concomitant]
     Indication: RESTLESS LEGS SYNDROME
     Dosage: ONE TAB AT HS
  9. IRON [Concomitant]
     Indication: BLOOD IRON DECREASED
     Dosage: THREE TABLETS DAILY
  10. WELCHOL [Concomitant]
     Indication: CROHN'S DISEASE
     Dosage: ONE PACK BID
  11. HUMIRA [Suspect]
     Indication: CROHN'S DISEASE
     Dosage: 160MG DAY ONE
     Route: 058
     Dates: start: 20110107, end: 20110107
  12. ASACOL [Concomitant]
     Indication: CROHN'S DISEASE
     Dosage: ONE TAB DAILY
  13. VITAMIN D [Concomitant]
     Indication: VITAMIN SUPPLEMENTATION
     Dosage: 2000UNITS-DAILY

REACTIONS (1)
  - INJECTION SITE PAIN [None]
